FAERS Safety Report 25687128 (Version 2)
Quarter: 2025Q3

REPORT INFORMATION
  Report Type: Spontaneous
  Country: US (occurrence: US)
  Receive Date: 20250816
  Receipt Date: 20250903
  Transmission Date: 20251021
  Serious: Yes (Other)
  Sender: ANI
  Company Number: US-ANIPHARMA-2025-US-037124

PATIENT
  Age: 61 Year
  Sex: Female

DRUGS (1)
  1. CORTICOTROPIN [Suspect]
     Active Substance: CORTICOTROPIN
     Indication: Polymyositis
     Route: 058
     Dates: start: 202504

REACTIONS (3)
  - Dyspnoea [Unknown]
  - Myocardial infarction [Unknown]
  - Contraindicated product administered [Not Recovered/Not Resolved]
